FAERS Safety Report 4532948-1 (Version None)
Quarter: 2004Q4

REPORT INFORMATION
  Report Type: 
  Country: None (occurrence: None)
  Receive Date: 20041206
  Receipt Date: 20041027
  Transmission Date: 20050328
  Serious: No
  Sender: FDA-Public Use
  Company Number: USA041082385

PATIENT
  Sex: Female

DRUGS (4)
  1. CYMBALTA [Suspect]
     Indication: DEPRESSION
     Dosage: 30 MG/1 DAY
     Dates: start: 20041013, end: 20041019
  2. ATENOLOL [Suspect]
  3. FOSAMAX [Concomitant]
  4. XANAX (ALPROXAZOLAM DUM) [Concomitant]

REACTIONS (1)
  - CONSTIPATION [None]
